FAERS Safety Report 9122500 (Version 1)
Quarter: 2013Q1

REPORT INFORMATION
  Report Type: Spontaneous
  Country: US (occurrence: US)
  Receive Date: 20130227
  Receipt Date: 20130227
  Transmission Date: 20140127
  Serious: Yes (Other)
  Sender: FDA-Public Use
  Company Number: PHEH2013US004301

PATIENT
  Sex: Female

DRUGS (2)
  1. TRILEPTAL [Suspect]
     Dosage: 1 DF, BID
  2. TRILEPTAL [Suspect]
     Dosage: 2 DF, BID

REACTIONS (2)
  - Blindness [Unknown]
  - Pain [Unknown]
